FAERS Safety Report 4780925-8 (Version None)
Quarter: 2005Q3

REPORT INFORMATION
  Report Type: 
  Country: None (occurrence: None)
  Receive Date: 20050926
  Receipt Date: 20050913
  Transmission Date: 20060218
  Serious: Yes (Hospitalization)
  Sender: FDA-Public Use
  Company Number: B0394328A

PATIENT
  Age: 31 Year
  Sex: Female

DRUGS (9)
  1. RETROVIR [Suspect]
     Indication: HIV INFECTION
  2. EPIVIR [Suspect]
     Indication: HIV INFECTION
  3. EFAVIRENZ [Suspect]
     Indication: HIV INFECTION
  4. TENOFOVIR (FORMULATION UNKNOWN) (TENOFOVIR) [Suspect]
     Indication: HIV INFECTION
  5. NEVIRAPINE [Suspect]
     Indication: HIV INFECTION
  6. DIDANOSINE [Suspect]
     Indication: HIV INFECTION
  7. CO-TRIMOXAZOLE [Concomitant]
  8. LOPINAVIR [Concomitant]
  9. CIDOFOVIR [Concomitant]

REACTIONS (41)
  - AGITATION [None]
  - ANGIOPATHY [None]
  - APRAXIA [None]
  - BALANCE DISORDER [None]
  - BLOOD BICARBONATE DECREASED [None]
  - C-REACTIVE PROTEIN INCREASED [None]
  - CEREBELLAR SYNDROME [None]
  - CRANIAL NERVE DISORDER [None]
  - DEMYELINATION [None]
  - DEPRESSED MOOD [None]
  - DYSARTHRIA [None]
  - FACIAL PALSY [None]
  - FALL [None]
  - FATIGUE [None]
  - GASTROINTESTINAL TUBE INSERTION [None]
  - GAZE PALSY [None]
  - GENERAL PHYSICAL HEALTH DETERIORATION [None]
  - HAEMOGLOBIN DECREASED [None]
  - HAEMORRHAGE [None]
  - HEADACHE [None]
  - HEMIPARESIS [None]
  - HEPATIC LESION [None]
  - HEPATITIS B [None]
  - HEPATITIS E ANTIGEN [None]
  - HYPERREFLEXIA [None]
  - HYPERTONIA [None]
  - INFLAMMATION [None]
  - LYMPHADENOPATHY [None]
  - MALAISE [None]
  - MENTAL DISORDER [None]
  - NAUSEA [None]
  - NECROSIS [None]
  - PROGRESSIVE MULTIFOCAL LEUKOENCEPHALOPATHY [None]
  - SOMNOLENCE [None]
  - SPEECH DISORDER [None]
  - SPLEEN DISORDER [None]
  - TEARFULNESS [None]
  - TUBERCULOSIS [None]
  - VASCULITIS [None]
  - VOMITING [None]
  - WHITE BLOOD CELL COUNT DECREASED [None]
